FAERS Safety Report 8591631-6 (Version None)
Quarter: 2012Q3

REPORT INFORMATION
  Report Type: 
  Country: None (occurrence: None)
  Receive Date: 20120814
  Receipt Date: 20120731
  Transmission Date: 20120928
  Serious: Yes (Other)
  Sender: FDA-Public Use
  Company Number: US-PFIZER INC-2012195729

PATIENT
  Age: 58 Year
  Sex: Male

DRUGS (2)
  1. ATENOLOL [Suspect]
     Dosage: UNK
     Route: 065
  2. OMEPRAZOLE [Suspect]
     Dosage: UNK
     Route: 048

REACTIONS (4)
  - ANGINA PECTORIS [None]
  - CEREBROVASCULAR ACCIDENT [None]
  - DRUG HYPERSENSITIVITY [None]
  - HYPERLIPIDAEMIA [None]
